FAERS Safety Report 12267205 (Version 1)
Quarter: 2016Q2

REPORT INFORMATION
  Report Type: Spontaneous
  Country: GB (occurrence: GB)
  Receive Date: 20160414
  Receipt Date: 20160414
  Transmission Date: 20160815
  Serious: Yes (Other)
  Sender: FDA-Public Use
  Company Number: GB-TEVA-635067ACC

PATIENT
  Age: 66 Year
  Sex: Female

DRUGS (2)
  1. TEVA UK VENLAFAXINE [Suspect]
     Active Substance: VENLAFAXINE HYDROCHLORIDE
     Indication: PRODUCT USED FOR UNKNOWN INDICATION
     Route: 048
  2. MIRTAZAPINE (ACTAVIS) [Interacting]
     Active Substance: MIRTAZAPINE
     Indication: MAJOR DEPRESSION
     Dosage: 45 MILLIGRAM DAILY; 45 MG, DAILY
     Route: 048
     Dates: start: 201412

REACTIONS (4)
  - Weight increased [Recovered/Resolved]
  - Chills [Recovered/Resolved]
  - Incontinence [Recovered/Resolved]
  - Drug interaction [Unknown]

NARRATIVE: CASE EVENT DATE: 201501
